FAERS Safety Report 6438968-4 (Version None)
Quarter: 2009Q4

REPORT INFORMATION
  Report Type: 
  Country: None (occurrence: None)
  Receive Date: 20091113
  Receipt Date: 20091109
  Transmission Date: 20100525
  Serious: Yes (Death, Hospitalization)
  Sender: FDA-Public Use
  Company Number: NL-BAYER-200932010GPV

PATIENT
  Age: 62 Year
  Sex: Male
  Weight: 124 kg

DRUGS (10)
  1. SORAFENIB [Suspect]
     Indication: NON-SMALL CELL LUNG CANCER
     Dosage: TOTAL DAILY DOSE: 800 MG
     Route: 048
     Dates: start: 20090902, end: 20090911
  2. ACETYLCYSTEINE [Concomitant]
     Indication: INCREASED BRONCHIAL SECRETION
     Route: 048
     Dates: start: 20040101
  3. PREDNISOLONE [Concomitant]
     Indication: CHRONIC OBSTRUCTIVE PULMONARY DISEASE
     Route: 048
     Dates: start: 20040101
  4. PREDNISOLONE [Concomitant]
     Route: 048
     Dates: start: 20090825, end: 20090904
  5. SPIRONOLACTONE [Concomitant]
     Indication: OEDEMA PERIPHERAL
     Route: 048
     Dates: start: 20080101
  6. AZITROMYCINE [Concomitant]
     Indication: INFECTION PROPHYLAXIS
     Route: 048
     Dates: start: 20080101
  7. SPIRIVA [Concomitant]
     Indication: DYSPNOEA
     Route: 048
     Dates: start: 20080101
  8. FUROSEMIDE [Concomitant]
     Indication: PROPHYLAXIS
     Route: 048
     Dates: start: 20090825, end: 20090904
  9. CIPROFLOXACIN [Concomitant]
     Indication: PRODUCTIVE COUGH
     Route: 048
     Dates: start: 20090825, end: 20090901
  10. DOMPERIDON [Concomitant]
     Indication: NAUSEA
     Dates: start: 20090901, end: 20090911

REACTIONS (4)
  - CEREBROVASCULAR ACCIDENT [None]
  - DIARRHOEA [None]
  - PNEUMONIA [None]
  - SPEECH DISORDER [None]
